FAERS Safety Report 10364436 (Version 1)
Quarter: 2014Q3

REPORT INFORMATION
  Report Type: Spontaneous
  Country: US (occurrence: None)
  Receive Date: 20140801
  Receipt Date: 20140801
  Transmission Date: 20150326
  Serious: Yes (Hospitalization)
  Sender: FDA-Public Use
  Company Number: BR14-287-AE

PATIENT
  Age: 83 Year
  Sex: Male

DRUGS (24)
  1. DEPAKOTE [Concomitant]
     Active Substance: DIVALPROEX SODIUM
  2. LYRICA [Concomitant]
     Active Substance: PREGABALIN
  3. CARBAMAZEPINE. [Concomitant]
     Active Substance: CARBAMAZEPINE
  4. DEPAKENE [Concomitant]
     Active Substance: VALPROIC ACID
  5. GABITRIL [Concomitant]
     Active Substance: TIAGABINE HYDROCHLORIDE
  6. VIMPAT [Concomitant]
     Active Substance: LACOSAMIDE
  7. NEURONTIN [Concomitant]
     Active Substance: GABAPENTIN
  8. TOPIRAMATE. [Concomitant]
     Active Substance: TOPIRAMATE
  9. TOPAMAX [Concomitant]
     Active Substance: TOPIRAMATE
  10. ZONEGRAN [Concomitant]
     Active Substance: ZONISAMIDE
  11. PRIMIDONE. [Concomitant]
     Active Substance: PRIMIDONE
  12. PREGABALIN. [Concomitant]
     Active Substance: PREGABALIN
  13. DILANTIN [Concomitant]
     Active Substance: PHENYTOIN
  14. ZONISAMIDE. [Concomitant]
     Active Substance: ZONISAMIDE
  15. VALIUM [Concomitant]
     Active Substance: DIAZEPAM
  16. NEURONTIN [Concomitant]
     Active Substance: GABAPENTIN
  17. LEVETIRACETAM. [Concomitant]
     Active Substance: LEVETIRACETAM
  18. FELBAMATE. [Suspect]
     Active Substance: FELBAMATE
     Indication: CONVULSION
     Route: 048
  19. MYSOLINE [Concomitant]
     Active Substance: PRIMIDONE
  20. TEGRETOL [Concomitant]
     Active Substance: CARBAMAZEPINE
  21. KEPPRA [Concomitant]
     Active Substance: LEVETIRACETAM
  22. VALPROIC ACID. [Concomitant]
     Active Substance: VALPROIC ACID
  23. PHENOBARBITAL. [Concomitant]
     Active Substance: PHENOBARBITAL
  24. LAMICTAL [Concomitant]
     Active Substance: LAMOTRIGINE

REACTIONS (2)
  - Convulsion [None]
  - Drug ineffective [None]
